FAERS Safety Report 4519560-5 (Version None)
Quarter: 2004Q4

REPORT INFORMATION
  Report Type: 
  Country: None (occurrence: None)
  Receive Date: 20041101
  Receipt Date: 20031117
  Transmission Date: 20050328
  Serious: Yes (Other)
  Sender: FDA-Public Use
  Company Number: HQ3784715AUG2002

PATIENT
  Age: 26 Year
  Sex: Female
  Weight: 67.19 kg

DRUGS (7)
  1. PREMARIN [Suspect]
     Indication: MENSTRUATION IRREGULAR
     Dosage: 0.625 MG DAILY ^OFF AND ON^, ORAL; 1.25 MG DAILY, ORAL
     Route: 048
     Dates: start: 20000101, end: 20010101
  2. PREMARIN [Suspect]
     Indication: OESTROGEN REPLACEMENT THERAPY
     Dosage: 0.625 MG DAILY ^OFF AND ON^, ORAL; 1.25 MG DAILY, ORAL
     Route: 048
     Dates: start: 20000101, end: 20010101
  3. PREMARIN [Suspect]
     Indication: MENSTRUATION IRREGULAR
     Dosage: 0.625 MG DAILY ^OFF AND ON^, ORAL; 1.25 MG DAILY, ORAL
     Route: 048
     Dates: start: 20010101
  4. PREMARIN [Suspect]
     Indication: OESTROGEN REPLACEMENT THERAPY
     Dosage: 0.625 MG DAILY ^OFF AND ON^, ORAL; 1.25 MG DAILY, ORAL
     Route: 048
     Dates: start: 20010101
  5. PREMARIN [Suspect]
     Indication: VULVOVAGINAL DRYNESS
     Dosage: ONE APPLICATOR DAILY, VAGINAL
     Route: 067
     Dates: start: 20020201, end: 20020701
  6. DEPO-PROVERA SUSPENSION/INJ [Concomitant]
  7. PREVACID [Concomitant]

REACTIONS (10)
  - BREAST MASS [None]
  - CHEST PAIN [None]
  - DEEP VEIN THROMBOSIS [None]
  - DIZZINESS [None]
  - HEADACHE [None]
  - NEOPLASM [None]
  - PALPITATIONS [None]
  - SWELLING FACE [None]
  - VISION BLURRED [None]
  - WEIGHT FLUCTUATION [None]
